FAERS Safety Report 4883120-7 (Version None)
Quarter: 2006Q1

REPORT INFORMATION
  Report Type: 
  Country: None (occurrence: None)
  Receive Date: 20060117
  Receipt Date: 20060117
  Transmission Date: 20060701
  Serious: Yes (Hospitalization)
  Sender: FDA-Public Use
  Company Number: None

PATIENT
  Age: 60 Year
  Sex: Female

DRUGS (7)
  1. HERCEPTIN [Suspect]
     Indication: BREAST CANCER
     Dosage: 2MG/KG   WEEKLY   IV
     Route: 042
  2. EPIRUBICIN [Suspect]
     Indication: BREAST CANCER
  3. THYROID TAB [Concomitant]
  4. NIACIN [Concomitant]
  5. VIT B [Concomitant]
  6. VIT C [Concomitant]
  7. CALCIUM GLUCONATE [Concomitant]

REACTIONS (2)
  - CARDIAC FAILURE [None]
  - DYSPNOEA [None]
